FAERS Safety Report 6153870-3 (Version None)
Quarter: 2009Q2

REPORT INFORMATION
  Report Type: 
  Country: None (occurrence: None)
  Receive Date: 20090414
  Receipt Date: 20090406
  Transmission Date: 20091009
  Serious: Yes (Hospitalization)
  Sender: FDA-Public Use
  Company Number: US-JNJFOC-20090402126

PATIENT
  Sex: Female
  Weight: 57.61 kg

DRUGS (6)
  1. DURAGESIC-100 [Suspect]
     Indication: PAIN
     Route: 062
  2. SEROQUEL [Concomitant]
     Route: 048
  3. XANAX [Concomitant]
     Indication: ANXIETY
     Route: 048
  4. AMBIEN CR [Concomitant]
     Indication: SLEEP DISORDER
     Route: 048
  5. LAMICTAL [Concomitant]
     Route: 048
  6. EFFEXOR XR [Concomitant]
     Route: 048

REACTIONS (6)
  - BENIGN OVARIAN TUMOUR [None]
  - DEVICE LEAKAGE [None]
  - FEELING COLD [None]
  - FEELING HOT [None]
  - FOOD POISONING [None]
  - HYPERHIDROSIS [None]
